FAERS Safety Report 25370799 (Version 1)
Quarter: 2025Q2

REPORT INFORMATION
  Report Type: Spontaneous
  Country: US (occurrence: US)
  Receive Date: 20250528
  Receipt Date: 20250528
  Transmission Date: 20250716
  Serious: Yes (Other)
  Sender: AMGEN
  Company Number: US-AMGEN-USASP2025100199

PATIENT

DRUGS (5)
  1. ADALIMUMAB [Suspect]
     Active Substance: ADALIMUMAB
     Indication: Hidradenitis
     Route: 065
  2. ADALIMUMAB [Suspect]
     Active Substance: ADALIMUMAB
     Indication: Inflammatory bowel disease
  3. ADALIMUMAB [Suspect]
     Active Substance: ADALIMUMAB
     Indication: Juvenile idiopathic arthritis
  4. ADALIMUMAB [Suspect]
     Active Substance: ADALIMUMAB
     Indication: Rheumatoid arthritis
  5. ADALIMUMAB [Suspect]
     Active Substance: ADALIMUMAB
     Indication: Spondylitis

REACTIONS (9)
  - Psoriatic arthropathy [Unknown]
  - Psoriasis [Unknown]
  - Erythrodermic psoriasis [Unknown]
  - Pustular psoriasis [Unknown]
  - Palmoplantar pustulosis [Unknown]
  - Dermatitis psoriasiform [Unknown]
  - Guttate psoriasis [Unknown]
  - Nail psoriasis [Unknown]
  - Drug ineffective [Unknown]
